FAERS Safety Report 9313114 (Version 3)
Quarter: 2013Q3

REPORT INFORMATION
  Report Type: Spontaneous
  Country: BR (occurrence: BR)
  Receive Date: 20130528
  Receipt Date: 20130820
  Transmission Date: 20140515
  Serious: Yes (Other)
  Sender: FDA-Public Use
  Company Number: BR-ASTRAZENECA-2013SE35049

PATIENT
  Age: 72 Year
  Sex: Male
  Weight: 68 kg

DRUGS (4)
  1. SYMBICORT TURBUHALER [Suspect]
     Indication: ASTHMA
     Dosage: 160/4.5 MCG DAILY
     Route: 055
     Dates: start: 2007
  2. SYMBICORT TURBUHALER [Suspect]
     Indication: ASTHMA
     Dosage: 320/9 MCG BID
     Route: 055
     Dates: start: 20130610
  3. GALVUS [Concomitant]
     Indication: DIABETES MELLITUS
     Dates: start: 2007
  4. DOXAZOSIN [Concomitant]
     Indication: PROSTATOMEGALY
     Dates: start: 2008

REACTIONS (3)
  - Prostatomegaly [Not Recovered/Not Resolved]
  - Dyspnoea [Recovered/Resolved]
  - Fatigue [Recovered/Resolved]
